FAERS Safety Report 4993629-3 (Version None)
Quarter: 2006Q2

REPORT INFORMATION
  Report Type: 
  Country: None (occurrence: None)
  Receive Date: 20060505
  Receipt Date: 20060424
  Transmission Date: 20061013
  Serious: Yes (Hospitalization, Other)
  Sender: FDA-Public Use
  Company Number: 2006AC00822

PATIENT
  Age: 63 Year
  Sex: Male

DRUGS (13)
  1. ZAFIRLUKAST [Suspect]
     Indication: ASTHMA
     Dates: start: 20031201
  2. SALMETEROL [Concomitant]
     Indication: ASTHMA
     Route: 045
  3. SALMETEROL [Concomitant]
     Indication: NASAL POLYPS
     Route: 045
  4. FLUTICASONE PROPIONATE [Concomitant]
     Indication: ASTHMA
  5. FLUTICASONE PROPIONATE [Concomitant]
     Indication: NASAL POLYPS
  6. TIOTROPIUM [Concomitant]
     Indication: ASTHMA
  7. TIOTROPIUM [Concomitant]
     Indication: NASAL POLYPS
  8. BUDESONIDE [Concomitant]
     Indication: ASTHMA
     Route: 045
  9. BUDESONIDE [Concomitant]
     Indication: NASAL POLYPS
     Route: 045
  10. PREDNISONE TAB [Concomitant]
     Indication: ASTHMA
     Route: 048
  11. PREDNISONE TAB [Concomitant]
     Indication: RHINITIS
     Route: 048
  12. DEFLAZACORT [Concomitant]
     Indication: ASTHMA
     Route: 048
  13. DEFLAZACORT [Concomitant]
     Indication: RHINITIS
     Route: 048

REACTIONS (6)
  - ABDOMINAL PAIN [None]
  - ANOREXIA [None]
  - EOSINOPHILIA [None]
  - ERECTILE DYSFUNCTION [None]
  - MALAISE [None]
  - WEIGHT DECREASED [None]
